FAERS Safety Report 21867114 (Version 5)
Quarter: 2024Q2

REPORT INFORMATION
  Report Type: Report from Study
  Country: US (occurrence: US)
  Receive Date: 20230116
  Receipt Date: 20240417
  Transmission Date: 20240716
  Serious: Yes (Other)
  Sender: FDA-Public Use
  Company Number: US-002147023-NVSC2023US006713

PATIENT
  Sex: Male

DRUGS (2)
  1. KESIMPTA [Suspect]
     Active Substance: OFATUMUMAB
     Indication: Multiple sclerosis
     Dosage: 20 MG, QMO
     Route: 058
  2. KESIMPTA [Suspect]
     Active Substance: OFATUMUMAB
     Dosage: 0.4 ML, QMO
     Route: 030

REACTIONS (13)
  - Multiple sclerosis relapse [Unknown]
  - Blindness [Unknown]
  - Gait inability [Not Recovered/Not Resolved]
  - Fatigue [Unknown]
  - Pain in extremity [Unknown]
  - Visual impairment [Unknown]
  - Throat tightness [Unknown]
  - Eating disorder [Unknown]
  - Mobility decreased [Unknown]
  - Malaise [Unknown]
  - Band sensation [Unknown]
  - Brain fog [Unknown]
  - Vomiting [Unknown]
